FAERS Safety Report 7867567-2 (Version None)
Quarter: 2011Q4

REPORT INFORMATION
  Report Type: 
  Country: None (occurrence: None)
  Receive Date: 20111028
  Receipt Date: 20111020
  Transmission Date: 20120403
  Serious: Yes (Other)
  Sender: FDA-Public Use
  Company Number: PHHY2010CA68849

PATIENT
  Sex: Female

DRUGS (2)
  1. ZOLEDRONOC ACID [Suspect]
     Indication: OSTEOPOROSIS
     Dosage: UNK UKN, UNK
     Dates: start: 20101006
  2. REMICADE [Concomitant]
     Indication: GASTROINTESTINAL DISORDER
     Dosage: UNK UKN, UNK

REACTIONS (4)
  - PAIN IN EXTREMITY [None]
  - ANAEMIA [None]
  - BLOOD IRON DECREASED [None]
  - COLITIS ULCERATIVE [None]
